FAERS Safety Report 21792656 (Version 2)
Quarter: 2023Q2

REPORT INFORMATION
  Report Type: Spontaneous
  Country: US (occurrence: US)
  Receive Date: 20221229
  Receipt Date: 20230410
  Transmission Date: 20230721
  Serious: Yes (Hospitalization, Other)
  Sender: FDA-Public Use
  Company Number: US-BRISTOL-MYERS SQUIBB COMPANY-2022-159756

PATIENT
  Age: 77 Year
  Sex: Male
  Weight: 88.0 kg

DRUGS (1)
  1. REVLIMID [Suspect]
     Active Substance: LENALIDOMIDE
     Indication: Plasma cell myeloma
     Dosage: 3W, 1W OFF
     Route: 048

REACTIONS (3)
  - Pneumonia [Unknown]
  - Haemoglobin decreased [Unknown]
  - Cardiac failure [Unknown]
